FAERS Safety Report 9000974 (Version 1)
Quarter: 2012Q4

REPORT INFORMATION
  Report Type: Spontaneous
  Country: GB (occurrence: None)
  Receive Date: 20121226
  Receipt Date: 20121226
  Transmission Date: 20130627
  Serious: Yes (Hospitalization)
  Sender: FDA-Public Use
  Company Number: AUR-APL-2012-05445

PATIENT
  Age: 63 Year
  Sex: Female

DRUGS (6)
  1. RISPERIDONE (RISPERIDONE) [Suspect]
     Indication: DEPRESSION PSYCHOTIC
     Dosage: (4 mg, 2 in 1 D)
     Route: 048
     Dates: start: 20121011, end: 20121108
  2. CHLORAMPHENICOL [Concomitant]
  3. LAXIDO [Concomitant]
  4. MIRTAZAPINE (MIRTAZAPINE) [Concomitant]
  5. SENNA (SENNA ALEXANDRINA) [Concomitant]
  6. VENLAFAXINE (VENLAFAXINE) [Concomitant]

REACTIONS (12)
  - Extrapyramidal disorder [None]
  - Parkinsonism [None]
  - Balance disorder [None]
  - Iron deficiency anaemia [None]
  - Constipation [None]
  - Bradyphrenia [None]
  - Emotional poverty [None]
  - Hypertonia [None]
  - Fall [None]
  - Tachycardia [None]
  - Hyperhidrosis [None]
  - Antinuclear antibody positive [None]
